FAERS Safety Report 6673429-9 (Version None)
Quarter: 2010Q2

REPORT INFORMATION
  Report Type: 
  Country: None (occurrence: None)
  Receive Date: 20100408
  Receipt Date: 20100329
  Transmission Date: 20101027
  Serious: Yes (Other)
  Sender: FDA-Public Use
  Company Number: US-PFIZER INC-2010033499

PATIENT
  Sex: Female
  Weight: 71.655 kg

DRUGS (5)
  1. ESTRING [Suspect]
     Dosage: 2 MG, FOR 90 DAYS
     Route: 067
     Dates: start: 20100310, end: 20100310
  2. SIMVASTATIN [Concomitant]
     Indication: BLOOD CHOLESTEROL INCREASED
     Dosage: 40 MG, 1X/DAY
     Route: 048
  3. FUROSEMIDE [Concomitant]
     Indication: BENIGN INTRACRANIAL HYPERTENSION
     Dosage: 20 MG, 1X/DAY
  4. ACETYLSALICYLIC ACID [Concomitant]
     Dosage: 81 MG, 1X/DAY
     Route: 048
  5. VITAMIN E [Concomitant]
     Dosage: UNK

REACTIONS (4)
  - ASTHENIA [None]
  - MUSCLE SPASMS [None]
  - TREMOR [None]
  - VAGINISMUS [None]
